FAERS Safety Report 4350466-0 (Version None)
Quarter: 2004Q2

REPORT INFORMATION
  Report Type: 
  Country: None (occurrence: None)
  Receive Date: 20040427
  Receipt Date: 20040406
  Transmission Date: 20050107
  Serious: Yes (Hospitalization)
  Sender: FDA-Public Use
  Company Number: M04-341-093

PATIENT
  Sex: Female
  Weight: 56 kg

DRUGS (2)
  1. VELCADE [Suspect]
     Indication: MULTIPLE MYELOMA
  2. DURAGESIC [Concomitant]

REACTIONS (5)
  - AMNESIA [None]
  - COGNITIVE DISORDER [None]
  - HALLUCINATION [None]
  - HERPES ZOSTER [None]
  - NEUROPATHY [None]
